FAERS Safety Report 14948681 (Version 6)
Quarter: 2018Q3

REPORT INFORMATION
  Report Type: Spontaneous
  Country: US (occurrence: US)
  Receive Date: 20180529
  Receipt Date: 20180815
  Transmission Date: 20181010
  Serious: Yes (Congenital Anomaly, Other)
  Sender: FDA-Public Use
  Company Number: PHEH2018US020761

PATIENT
  Sex: Male

DRUGS (3)
  1. ONDANSETRON [Suspect]
     Active Substance: ONDANSETRON
     Indication: FOETAL EXPOSURE DURING PREGNANCY
     Dosage: MOTHER DOSE: 4 MG, UNK
     Route: 064
  2. ONDANSETRON AUROBINDO [Suspect]
     Active Substance: ONDANSETRON HYDROCHLORIDE
     Indication: FOETAL EXPOSURE DURING PREGNANCY
     Dosage: MOTHER DOSE: 4 MG, UNK
     Route: 064
  3. ONDANSETRON HYDROCHLORIDE. [Suspect]
     Active Substance: ONDANSETRON HYDROCHLORIDE
     Indication: FOETAL EXPOSURE DURING PREGNANCY
     Route: 064

REACTIONS (53)
  - Aortic dilatation [Unknown]
  - Patent ductus arteriosus [Unknown]
  - Heart disease congenital [Unknown]
  - Foetal exposure during pregnancy [Unknown]
  - Cardiac murmur [Unknown]
  - Ear pain [Unknown]
  - Nasal congestion [Unknown]
  - Viral infection [Unknown]
  - Wheezing [Unknown]
  - Conductive deafness [Unknown]
  - Eczema [Unknown]
  - Eustachian tube dysfunction [Unknown]
  - Dyspnoea [Unknown]
  - Atrial septal defect [Unknown]
  - Laevocardia [Unknown]
  - Hypersomnia [Unknown]
  - Cough [Unknown]
  - Bronchitis [Unknown]
  - Aortic stenosis [Unknown]
  - Congenital melanocytic naevus [Unknown]
  - Aortic valve incompetence [Unknown]
  - Left ventricular hypertrophy [Unknown]
  - Sleep apnoea syndrome [Unknown]
  - Rash [Unknown]
  - Abdominal discomfort [Unknown]
  - Tricuspid valve incompetence [Unknown]
  - Mitral valve incompetence [Unknown]
  - Gastrooesophageal reflux disease [Unknown]
  - Upper respiratory tract infection [Unknown]
  - Lymphadenopathy [Unknown]
  - Malaise [Unknown]
  - Pharyngitis [Unknown]
  - Asthma [Unknown]
  - Rhinorrhoea [Unknown]
  - Middle ear disorder [Unknown]
  - Neoplasm skin [Unknown]
  - Croup infectious [Unknown]
  - Lower respiratory tract inflammation [Unknown]
  - Dermatitis [Unknown]
  - Irritability [Unknown]
  - Bicuspid aortic valve [Unknown]
  - Capillary disorder [Unknown]
  - Arrhythmia [Unknown]
  - Otitis media chronic [Unknown]
  - Erythema [Unknown]
  - Atrial tachycardia [Unknown]
  - Adenoidal hypertrophy [Unknown]
  - Ear infection [Unknown]
  - Vomiting [Unknown]
  - Cerumen impaction [Unknown]
  - Arthropod bite [Unknown]
  - Pyrexia [Unknown]
  - Tonsillar hypertrophy [Unknown]
